FAERS Safety Report 23355492 (Version 2)
Quarter: 2024Q1

REPORT INFORMATION
  Report Type: Spontaneous
  Country: GB (occurrence: GB)
  Receive Date: 20240102
  Receipt Date: 20240124
  Transmission Date: 20240409
  Serious: Yes (Death, Other)
  Sender: FDA-Public Use
  Company Number: GB-MHRA-WEBRADR-202312201533244840-RGFZJ

PATIENT
  Age: 76 Year

DRUGS (1)
  1. BISOPROLOL [Suspect]
     Active Substance: BISOPROLOL\BISOPROLOL FUMARATE
     Indication: Product used for unknown indication
     Dosage: 10 MILLIGRAM, ONCE A DAY
     Route: 065

REACTIONS (4)
  - Fall [Fatal]
  - Hypotension [Fatal]
  - Chronic kidney disease [Fatal]
  - Multiple organ dysfunction syndrome [Fatal]
